FAERS Safety Report 10612280 (Version 4)
Quarter: 2015Q3

REPORT INFORMATION
  Report Type: Spontaneous
  Country: JP (occurrence: JP)
  Receive Date: 20141127
  Receipt Date: 20150708
  Transmission Date: 20151125
  Serious: Yes (Death, Disabling)
  Sender: FDA-Public Use
  Company Number: JP-BRISTOL-MYERS SQUIBB COMPANY-21178991

PATIENT
  Age: 66 Year
  Sex: Male
  Weight: 49 kg

DRUGS (3)
  1. ERBITUX [Suspect]
     Active Substance: CETUXIMAB
     Indication: HYPOPHARYNGEAL CANCER
     Dosage: UNK
     Route: 041
     Dates: start: 20140613, end: 20140627
  2. MINOMYCIN [Concomitant]
     Active Substance: MINOCYCLINE HYDROCHLORIDE
     Indication: PRODUCT USED FOR UNKNOWN INDICATION
     Route: 048
  3. ALLELOCK [Concomitant]
     Active Substance: OLOPATADINE HYDROCHLORIDE
     Indication: PRODUCT USED FOR UNKNOWN INDICATION
     Dosage: UNK
     Route: 048
     Dates: start: 20140614, end: 20140627

REACTIONS (3)
  - Rash [Fatal]
  - Interstitial lung disease [Fatal]
  - Cerebral infarction [Unknown]

NARRATIVE: CASE EVENT DATE: 20140622
